FAERS Safety Report 7058163-8 (Version None)
Quarter: 2010Q4

REPORT INFORMATION
  Report Type: 
  Country: None (occurrence: None)
  Receive Date: 20101022
  Receipt Date: 20101007
  Transmission Date: 20110411
  Serious: Yes (Death, Hospitalization)
  Sender: FDA-Public Use
  Company Number: BE-AMGEN LTD.-KDC441686

PATIENT

DRUGS (9)
  1. PANITUMUMAB [Suspect]
     Indication: COLORECTAL CANCER
     Dosage: UNK UNK, Q2WK
     Route: 042
     Dates: start: 20100608, end: 20100810
  2. OXALIPLATIN [Suspect]
     Indication: COLORECTAL CANCER
     Dosage: 85 MG/M2, Q2WK
     Route: 042
     Dates: start: 20100608
  3. FLUOROURACIL [Suspect]
     Dosage: 2400 MG/M2, Q2WK
     Route: 042
     Dates: start: 20100608
  4. FOLINIC ACID [Concomitant]
     Dosage: 200 MG/M2, Q2WK
     Route: 042
     Dates: start: 20100608
  5. MEDROL [Concomitant]
     Dosage: 32 MG, QD
  6. VENOFER [Concomitant]
     Dosage: 2 UNK, UNK
  7. DARBEPOETIN ALFA [Concomitant]
     Dosage: 300 A?G, Q2WK
     Route: 058
  8. TAVANIC [Concomitant]
     Dosage: 500 MG, UNK
     Dates: start: 20100909
  9. AUGMENTIN '125' [Concomitant]

REACTIONS (1)
  - RESPIRATORY FAILURE [None]
